FAERS Safety Report 25551374 (Version 1)
Quarter: 2025Q3

REPORT INFORMATION
  Report Type: Spontaneous
  Country: US (occurrence: None)
  Receive Date: 20250711
  Receipt Date: 20250711
  Transmission Date: 20251021
  Serious: Yes (Hospitalization)
  Sender: FDA-CTU
  Company Number: None

PATIENT
  Age: 39 Year
  Sex: Female
  Weight: 90 kg

DRUGS (2)
  1. ZURANOLONE [Suspect]
     Active Substance: ZURANOLONE
     Indication: Perinatal depression
     Dosage: FREQUENCY : AT BEDTIME;?
     Route: 048
     Dates: start: 20250626, end: 20250705
  2. LASIX [Concomitant]
     Active Substance: FUROSEMIDE

REACTIONS (10)
  - Pain in extremity [None]
  - Muscular weakness [None]
  - Arthritis [None]
  - Grip strength decreased [None]
  - Rash erythematous [None]
  - Oedema peripheral [None]
  - Pyrexia [None]
  - Weight increased [None]
  - Anaemia [None]
  - Hypertransaminasaemia [None]

NARRATIVE: CASE EVENT DATE: 20250707
